FAERS Safety Report 20243468 (Version 1)
Quarter: 2021Q4

REPORT INFORMATION
  Report Type: Spontaneous
  Country: CA (occurrence: CA)
  Receive Date: 20211228
  Receipt Date: 20211228
  Transmission Date: 20220304
  Serious: Yes (Death, Other)
  Sender: FDA-Public Use
  Company Number: CA-SUN PHARMACEUTICAL INDUSTRIES LTD-2021R1-321872

PATIENT
  Age: 66 Year
  Sex: Male

DRUGS (2)
  1. CAPECITABINE [Suspect]
     Active Substance: CAPECITABINE
     Indication: Gastric cancer recurrent
     Dosage: 625 MILLIGRAM/SQ. METER, BID
     Route: 048
  2. CISPLATIN [Suspect]
     Active Substance: CISPLATIN
     Indication: Gastric cancer recurrent
     Dosage: 60 MILLIGRAM/SQ. METER EVERY 3 WEEKS
     Route: 042

REACTIONS (2)
  - Disease recurrence [Fatal]
  - Therapy non-responder [Unknown]
